FAERS Safety Report 5962651-2 (Version None)
Quarter: 2008Q4

REPORT INFORMATION
  Report Type: 
  Country: None (occurrence: None)
  Receive Date: 20081121
  Receipt Date: 20081119
  Transmission Date: 20090506
  Serious: Yes (Death, Other)
  Sender: FDA-Public Use
  Company Number: PHHY2008US24986

PATIENT
  Age: 67 Year
  Sex: Male

DRUGS (3)
  1. CLOZARIL [Suspect]
     Indication: SCHIZOAFFECTIVE DISORDER
     Dosage: 450 MG/DAY
     Dates: start: 19980101, end: 20080419
  2. CLOMIPRAMINE HCL [Suspect]
     Indication: OBSESSIVE-COMPULSIVE DISORDER
     Dosage: 100 MG, BID
     Dates: start: 19980101, end: 20080419
  3. LORAZEPAM [Concomitant]

REACTIONS (4)
  - ARTERIOSCLEROSIS [None]
  - CARDIOMEGALY [None]
  - DEATH [None]
  - OBESITY [None]
